FAERS Safety Report 9665701 (Version 1)
Quarter: 2013Q4

REPORT INFORMATION
  Report Type: Spontaneous
  Country: US (occurrence: None)
  Receive Date: 20131031
  Receipt Date: 20131031
  Transmission Date: 20140711
  Serious: Yes (Hospitalization)
  Sender: FDA-Public Use
  Company Number: None

PATIENT
  Age: 46 Year
  Sex: Female
  Weight: 86.8 kg

DRUGS (5)
  1. LOESTRIN [Suspect]
     Indication: UTERINE HAEMORRHAGE
     Route: 048
     Dates: start: 20130916, end: 20131016
  2. CLONAZEPAM [Concomitant]
  3. SIMVASTATIN [Concomitant]
  4. AMBIEN [Concomitant]
  5. LISINOPRIL [Concomitant]

REACTIONS (4)
  - Chest pain [None]
  - Pyrexia [None]
  - Painful respiration [None]
  - No therapeutic response [None]
